FAERS Safety Report 14631878 (Version 1)
Quarter: 2018Q1

REPORT INFORMATION
  Report Type: Report from Study
  Country: JP (occurrence: JP)
  Receive Date: 20180313
  Receipt Date: 20180313
  Transmission Date: 20180509
  Serious: Yes (Death, Other)
  Sender: FDA-Public Use
  Company Number: JP-SA-2018SA072143

PATIENT
  Age: 9 Year
  Sex: Male

DRUGS (4)
  1. FLUDARABINE PHOSPHATE. [Suspect]
     Active Substance: FLUDARABINE PHOSPHATE
     Indication: BONE MARROW CONDITIONING REGIMEN
     Dosage: DAY 2-6
     Route: 041
  2. IDARUBICIN [Suspect]
     Active Substance: IDARUBICIN
     Indication: BONE MARROW CONDITIONING REGIMEN
     Route: 041
  3. ARA-C [Suspect]
     Active Substance: CYTARABINE
     Indication: BONE MARROW CONDITIONING REGIMEN
     Dosage: DAY 2-6 DOSE:2 GRAM(S)/SQUARE METER
     Route: 041
  4. NEUTROGIN [Suspect]
     Active Substance: LENOGRASTIM
     Indication: BONE MARROW CONDITIONING REGIMEN
     Dosage: DAY 1-6
     Route: 041

REACTIONS (3)
  - Death [Fatal]
  - Neutropenia [Unknown]
  - Leukopenia [Unknown]
